FAERS Safety Report 7686969-0 (Version None)
Quarter: 2011Q3

REPORT INFORMATION
  Report Type: 
  Country: None (occurrence: None)
  Receive Date: 20110816
  Receipt Date: 20110808
  Transmission Date: 20111222
  Serious: Yes (Hospitalization, Other)
  Sender: FDA-Public Use
  Company Number: US-BAYER-2011-006768

PATIENT
  Age: 41 Year
  Sex: Female

DRUGS (11)
  1. CLOTRIMAZOLE-BETA [Concomitant]
  2. TYLENOL-500 [Concomitant]
     Indication: ANALGESIC THERAPY
  3. AZITHROMYCIN [Concomitant]
  4. LORAZEPAM [Concomitant]
     Dosage: 0.5 MG, UNK
  5. IBUPROFEN [Concomitant]
     Indication: MUSCLE SPASMS
  6. OXYCODONE HCL AND ACETAMINOPHEN [Concomitant]
  7. YAZ [Suspect]
     Indication: CONTRACEPTION
     Dosage: UNK
     Dates: start: 20090614, end: 20090722
  8. SUDAFED 12 HOUR [Concomitant]
     Indication: HYPERSENSITIVITY
  9. PROPXYPHEN-APAP [Concomitant]
  10. YAZ [Suspect]
     Indication: PREMENSTRUAL SYNDROME
  11. ASCORBIC ACID [Concomitant]

REACTIONS (27)
  - ARRHYTHMIA [None]
  - PAIN IN EXTREMITY [None]
  - FATIGUE [None]
  - PARAESTHESIA [None]
  - HEADACHE [None]
  - COGNITIVE DISORDER [None]
  - DISCOMFORT [None]
  - EMOTIONAL DISTRESS [None]
  - INTRACRANIAL VENOUS SINUS THROMBOSIS [None]
  - VOMITING [None]
  - ABNORMAL FAECES [None]
  - PAIN [None]
  - PERIPHERAL COLDNESS [None]
  - POST-TRAUMATIC AMNESTIC DISORDER [None]
  - ABDOMINAL DISTENSION [None]
  - PELVIC PAIN [None]
  - ABDOMINAL PAIN [None]
  - AFFECTIVE DISORDER [None]
  - ANXIETY [None]
  - PALPITATIONS [None]
  - CONSTIPATION [None]
  - HAEMATOCHEZIA [None]
  - DYSPEPSIA [None]
  - MENTAL DISORDER [None]
  - SENSATION OF HEAVINESS [None]
  - CHEST PAIN [None]
  - SLEEP DISORDER [None]
